FAERS Safety Report 11704601 (Version 1)
Quarter: 2015Q4

REPORT INFORMATION
  Report Type: Spontaneous
  Country: US (occurrence: None)
  Receive Date: 20151105
  Receipt Date: 20151105
  Transmission Date: 20160304
  Serious: No
  Sender: FDA-Public Use
  Company Number: None

PATIENT
  Sex: Female

DRUGS (1)
  1. MAKENA [Suspect]
     Active Substance: HYDROXYPROGESTERONE CAPROATE
     Indication: PREMATURE LABOUR
     Dosage: INJECTION IN THE MUSCLE
     Route: 030
     Dates: start: 20150902

REACTIONS (3)
  - Injection site reaction [None]
  - Injection site irritation [None]
  - Injection site mass [None]

NARRATIVE: CASE EVENT DATE: 2015
